FAERS Safety Report 9521147 (Version 2)
Quarter: 2013Q3

REPORT INFORMATION
  Report Type: Report from Study
  Country: DE (occurrence: DE)
  Receive Date: 20130913
  Receipt Date: 20130913
  Transmission Date: 20140515
  Serious: Yes (Death, Hospitalization)
  Sender: FDA-Public Use
  Company Number: DE-ROCHE-1253339

PATIENT
  Age: 72 Year
  Sex: Female
  Weight: 82 kg

DRUGS (6)
  1. BEVACIZUMAB [Suspect]
     Indication: COLON CANCER
     Dosage: LAST DOSE ON 28/JUN/2013
     Route: 042
     Dates: start: 20130628
  2. CAPECITABINE [Suspect]
     Indication: COLON CANCER
     Dosage: LAST DOSE ON 11/JUL/2013
     Route: 048
     Dates: start: 20130628
  3. OXALIPLATIN [Suspect]
     Indication: COLON CANCER
     Dosage: LAST DOSE ON 04/JUL/2013
     Route: 042
     Dates: start: 20130627
  4. ONDANSETRON [Concomitant]
     Indication: PROPHYLAXIS
     Route: 042
     Dates: start: 20130627, end: 20130704
  5. DEXAMETHASONE [Concomitant]
     Indication: COLON CANCER
     Route: 042
     Dates: start: 20130627, end: 20130704
  6. MCP [Concomitant]
     Indication: PROPHYLAXIS
     Route: 048
     Dates: start: 20130627

REACTIONS (4)
  - Enteritis leukopenic [Fatal]
  - Sepsis [Fatal]
  - Malignant neoplasm progression [Fatal]
  - Diarrhoea [Not Recovered/Not Resolved]
